FAERS Safety Report 17284773 (Version 2)
Quarter: 2020Q1

REPORT INFORMATION
  Report Type: Report from Study
  Country: US (occurrence: US)
  Receive Date: 20200117
  Receipt Date: 20200309
  Transmission Date: 20200409
  Serious: Yes (Hospitalization)
  Sender: FDA-Public Use
  Company Number: US-EISAI MEDICAL RESEARCH-EC-2019-063123

PATIENT
  Sex: Female
  Weight: 79 kg

DRUGS (3)
  1. LENVIMA [Suspect]
     Active Substance: LENVATINIB
     Indication: HEPATOCELLULAR CARCINOMA
     Route: 048
     Dates: start: 20190920
  2. AMLODIPINE BESYLATE. [Concomitant]
     Active Substance: AMLODIPINE BESYLATE
  3. MUPIROCIN. [Concomitant]
     Active Substance: MUPIROCIN

REACTIONS (24)
  - Vomiting [Not Recovered/Not Resolved]
  - Dry skin [Unknown]
  - Mastication disorder [Not Recovered/Not Resolved]
  - Weight decreased [Not Recovered/Not Resolved]
  - Hyperkeratosis [Unknown]
  - Skin fissures [Unknown]
  - Incision site discharge [Unknown]
  - Rash [Unknown]
  - Pain in extremity [Unknown]
  - Pigmentation disorder [Unknown]
  - Confusional state [Not Recovered/Not Resolved]
  - Gastric haemorrhage [Unknown]
  - Gastric disorder [Unknown]
  - Fatigue [Not Recovered/Not Resolved]
  - Blister [Unknown]
  - Muscular weakness [Unknown]
  - Faeces discoloured [Unknown]
  - Blood pressure increased [Unknown]
  - Dizziness [Not Recovered/Not Resolved]
  - Nausea [Not Recovered/Not Resolved]
  - Oral pain [Not Recovered/Not Resolved]
  - Headache [Not Recovered/Not Resolved]
  - Gait disturbance [Unknown]
  - Intestinal obstruction [Unknown]

NARRATIVE: CASE EVENT DATE: 2019
